FAERS Safety Report 19835670 (Version 2)
Quarter: 2021Q4

REPORT INFORMATION
  Report Type: Report from Study
  Country: PL (occurrence: PL)
  Receive Date: 20210915
  Receipt Date: 20211019
  Transmission Date: 20220303
  Serious: Yes (Other)
  Sender: FDA-Public Use
  Company Number: PL-TEVA-2021-PL-1953937

PATIENT
  Age: 74 Year
  Sex: Female

DRUGS (3)
  1. ATORVASTATIN [Interacting]
     Active Substance: ATORVASTATIN
     Indication: Product used for unknown indication
     Route: 065
  2. CARVEDILOL [Interacting]
     Active Substance: CARVEDILOL
     Indication: Product used for unknown indication
     Route: 065
  3. CLARITHROMYCIN [Interacting]
     Active Substance: CLARITHROMYCIN
     Indication: Product used for unknown indication
     Route: 065

REACTIONS (4)
  - Deafness [Unknown]
  - Contraindicated product administered [Unknown]
  - Drug level increased [Unknown]
  - Drug interaction [Unknown]
